FAERS Safety Report 25158608 (Version 1)
Quarter: 2025Q2

REPORT INFORMATION
  Report Type: Spontaneous
  Country: US (occurrence: US)
  Receive Date: 20250404
  Receipt Date: 20250404
  Transmission Date: 20250716
  Serious: Yes (Other)
  Sender: BAUSCH AND LOMB
  Company Number: US-BAUSCHBL-2025BNL005491

PATIENT
  Age: 38 Year
  Sex: Female

DRUGS (5)
  1. LOTEPREDNOL [Suspect]
     Active Substance: LOTEPREDNOL
     Indication: Graft versus host disease
     Route: 061
  2. GANCICLOVIR [Suspect]
     Active Substance: GANCICLOVIR
     Indication: Corneal lesion
     Route: 061
  3. RUXOLITINIB [Suspect]
     Active Substance: RUXOLITINIB
     Indication: Graft versus host disease
     Route: 065
  4. CYCLOSPORINE [Suspect]
     Active Substance: CYCLOSPORINE
     Indication: Graft versus host disease
     Route: 047
  5. FAMCICLOVIR [Concomitant]
     Active Substance: FAMCICLOVIR
     Indication: Graft versus host disease
     Route: 065

REACTIONS (2)
  - Molluscum contagiosum [Recovering/Resolving]
  - Drug intolerance [Unknown]
